FAERS Safety Report 8506634-7 (Version None)
Quarter: 2012Q3

REPORT INFORMATION
  Report Type: 
  Country: None (occurrence: None)
  Receive Date: 20120712
  Receipt Date: 20120710
  Transmission Date: 20120928
  Serious: No
  Sender: FDA-Public Use
  Company Number: US-PFIZER INC-2012166598

PATIENT
  Sex: Male
  Weight: 113 kg

DRUGS (8)
  1. KLONOPIN [Concomitant]
     Indication: ANXIETY
     Dosage: 8 MG, UNK
  2. VISTARIL [Concomitant]
     Indication: ANTIALLERGIC THERAPY
     Dosage: 50 MG, UNK
  3. AMBIEN [Concomitant]
     Indication: SLEEP DISORDER
     Dosage: 10 MG, UNK
  4. CELEXA [Concomitant]
     Indication: DEPRESSION
     Dosage: 20 MG, DAILY
  5. VISTARIL [Concomitant]
     Indication: ANXIETY
  6. DOXEPIN [Concomitant]
     Indication: ANTIALLERGIC THERAPY
     Dosage: 25 MG, DAILY
  7. GEODON [Suspect]
     Indication: ANGER
     Dosage: 20 MG, 2X/DAY
  8. TRILEPTAL [Suspect]
     Indication: AFFECTIVE DISORDER
     Dosage: 400 MG, DAILY
     Dates: start: 20110101, end: 20120401

REACTIONS (2)
  - SKIN BURNING SENSATION [None]
  - RASH MACULAR [None]
